FAERS Safety Report 8057927-1 (Version None)
Quarter: 2011Q4

REPORT INFORMATION
  Report Type: 
  Country: None (occurrence: None)
  Receive Date: 20111220
  Receipt Date: 20110307
  Transmission Date: 20120403
  Serious: Yes (Other)
  Sender: FDA-Public Use
  Company Number: US018395

PATIENT
  Age: 27 Year
  Sex: Male
  Weight: 91 kg

DRUGS (7)
  1. OXYCONTIN [Suspect]
     Indication: PAIN
     Dosage: 1200 MCG (400 MCG, 3 IN 1 D), ORAL
     Route: 048
     Dates: start: 20040101
  2. LOPRESSONR (50 MILLIGRAM, TABLETS) [Concomitant]
  3. NTG (0.4  MILLIGRAM, TABLETS) [Concomitant]
  4. PROVIGIL (200 MILLIGRAM, TABLETS) [Concomitant]
  5. PROTONIX (40 MILLIGRAM, TABLETS) [Concomitant]
  6. ACTIQ [Suspect]
     Indication: BONE PAIN
     Dosage: 6400 MCG (1600 MCG, 4 IN 1 D), BU
     Route: 002
     Dates: start: 20040101
  7. GABITRIL ((2 MILLIGRAM, TABLETS) [Concomitant]

REACTIONS (2)
  - DENTAL CARIES [None]
  - DRY MOUTH [None]
